FAERS Safety Report 23046733 (Version 1)
Quarter: 2023Q4

REPORT INFORMATION
  Report Type: Spontaneous
  Country: US (occurrence: US)
  Receive Date: 20231009
  Receipt Date: 20231009
  Transmission Date: 20240109
  Serious: No
  Sender: FDA-Public Use
  Company Number: US-Kaleo, Inc.-2022KL000067

PATIENT
  Age: 4 Year
  Sex: Male

DRUGS (1)
  1. AUVI-Q [Suspect]
     Active Substance: EPINEPHRINE
     Indication: Anaphylactic reaction
     Dates: start: 20220827, end: 20220827

REACTIONS (1)
  - Therapeutic response delayed [Recovered/Resolved]

NARRATIVE: CASE EVENT DATE: 20220827
